FAERS Safety Report 9289428 (Version 2)
Quarter: 2013Q2

REPORT INFORMATION
  Report Type: Spontaneous
  Country: US (occurrence: US)
  Receive Date: 20130514
  Receipt Date: 20130604
  Transmission Date: 20140414
  Serious: No
  Sender: FDA-Public Use
  Company Number: US-009507513-1305USA003072

PATIENT
  Age: 20 Year
  Sex: Female

DRUGS (2)
  1. NEXPLANON [Suspect]
     Dosage: 1 ROD FOR THREE YEARS, 1ST IMPLANT
     Route: 059
     Dates: start: 20130506, end: 20130506
  2. NEXPLANON [Suspect]
     Dosage: 2ND IMPLANT
     Route: 059
     Dates: start: 20130523

REACTIONS (3)
  - Device difficult to use [Recovered/Resolved]
  - Product quality issue [Unknown]
  - No adverse event [Unknown]
